FAERS Safety Report 8604206-7 (Version None)
Quarter: 2012Q3

REPORT INFORMATION
  Report Type: 
  Country: None (occurrence: None)
  Receive Date: 20120820
  Receipt Date: 20120813
  Transmission Date: 20120928
  Serious: No
  Sender: FDA-Public Use
  Company Number: US-PFIZER INC-2012198226

PATIENT
  Age: 66 Year
  Sex: Female

DRUGS (1)
  1. SUTENT [Suspect]
     Indication: GASTROINTESTINAL STROMAL TUMOUR
     Dosage: 50 MG, CYCLIC: 28 DAYS ON FOLLOWED BY 14 DAYS REST

REACTIONS (4)
  - ABDOMINAL DISCOMFORT [None]
  - OCULAR ICTERUS [None]
  - YELLOW SKIN [None]
  - CHROMATURIA [None]
